FAERS Safety Report 8722314 (Version 6)
Quarter: 2015Q1

REPORT INFORMATION
  Report Type: Report from Study
  Country: US (occurrence: US)
  Receive Date: 20120813
  Receipt Date: 20150306
  Transmission Date: 20150721
  Serious: Yes (Hospitalization, Other)
  Sender: FDA-Public Use
  Company Number: US-BIOGENIDEC-2005BI008835

PATIENT
  Age: 46 Year
  Sex: Female
  Weight: 83 kg

DRUGS (4)
  1. AVONEX [Suspect]
     Active Substance: INTERFERON BETA-1A
     Indication: MULTIPLE SCLEROSIS
     Route: 030
     Dates: start: 20120909
  2. FERROUS SULFATE [Concomitant]
     Active Substance: FERROUS SULFATE\FERROUS SULFATE, DRIED
     Indication: IRON DEFICIENCY ANAEMIA
     Dates: start: 200411
  3. AVONEX [Suspect]
     Active Substance: INTERFERON BETA-1A
     Indication: MULTIPLE SCLEROSIS
     Route: 030
     Dates: start: 20050319, end: 20120729
  4. PREVACID [Concomitant]
     Active Substance: LANSOPRAZOLE
     Indication: DYSPEPSIA
     Dates: start: 2001

REACTIONS (26)
  - Gastric haemorrhage [Recovered/Resolved]
  - Speech disorder [Recovered/Resolved]
  - Hyperhidrosis [Recovered/Resolved]
  - CREST syndrome [Not Recovered/Not Resolved]
  - Faecal incontinence [Not Recovered/Not Resolved]
  - Blindness [Recovered/Resolved]
  - Chills [Recovered/Resolved]
  - Muscle spasms [Not Recovered/Not Resolved]
  - Asthenia [Recovered/Resolved]
  - Pain [Recovered/Resolved]
  - Neck pain [Recovered/Resolved]
  - Pain in jaw [Recovered/Resolved]
  - Chest pain [Recovered/Resolved]
  - Dyspnoea [Recovered/Resolved]
  - Renal impairment [Not Recovered/Not Resolved]
  - Headache [Not Recovered/Not Resolved]
  - Pyrexia [Recovered/Resolved]
  - Haematochezia [Not Recovered/Not Resolved]
  - Papillary thyroid cancer [Recovered/Resolved]
  - Transfusion [Recovered/Resolved]
  - Pulmonary embolism [Recovered/Resolved]
  - Lung disorder [Not Recovered/Not Resolved]
  - Deep vein thrombosis [Recovered/Resolved]
  - Multiple sclerosis relapse [Recovered/Resolved]
  - Gastritis [Unknown]
  - Influenza like illness [Recovered/Resolved]

NARRATIVE: CASE EVENT DATE: 200504
